FAERS Safety Report 16016282 (Version 1)
Quarter: 2019Q1

REPORT INFORMATION
  Report Type: Spontaneous
  Country: US (occurrence: US)
  Receive Date: 20190228
  Receipt Date: 20190228
  Transmission Date: 20190418
  Serious: Yes (Other)
  Sender: FDA-Public Use
  Company Number: US-ALEXION PHARMACEUTICALS INC.-A201902823

PATIENT
  Sex: Female

DRUGS (1)
  1. SOLIRIS [Suspect]
     Active Substance: ECULIZUMAB
     Indication: PAROXYSMAL NOCTURNAL HAEMOGLOBINURIA
     Dosage: UNK
     Route: 042

REACTIONS (24)
  - Cervical cord compression [Unknown]
  - Loss of consciousness [Unknown]
  - Liver function test increased [Unknown]
  - Pyrexia [Unknown]
  - Cerebral palsy [Unknown]
  - Transient ischaemic attack [Unknown]
  - Platelet count decreased [Unknown]
  - Blood alkaline phosphatase increased [Unknown]
  - Paracentesis [Unknown]
  - Abdominal pain [Unknown]
  - Diarrhoea [Unknown]
  - Melaena [Unknown]
  - Hepatitis B virus test positive [Unknown]
  - Vitreous floaters [Unknown]
  - Arthralgia [Unknown]
  - Mass [Unknown]
  - Chills [Unknown]
  - Dizziness [Unknown]
  - White blood cell count decreased [Unknown]
  - Cholecystitis [Unknown]
  - Abdominal pain upper [Unknown]
  - Headache [Unknown]
  - Hypersensitivity [Unknown]
  - Viral infection [Unknown]

NARRATIVE: CASE EVENT DATE: 201812
